FAERS Safety Report 5113654-1 (Version None)
Quarter: 2006Q3

REPORT INFORMATION
  Report Type: 
  Country: None (occurrence: None)
  Receive Date: 20060925
  Receipt Date: 20060717
  Transmission Date: 20061208
  Serious: Yes (Hospitalization)
  Sender: FDA-Public Use
  Company Number: JP-ABBOTT-06P-087-0338280-00

PATIENT

DRUGS (4)
  1. CLARITHROMYCIN [Suspect]
     Indication: HELICOBACTER INFECTION
  2. AMOXICILLIN [Suspect]
     Indication: HELICOBACTER INFECTION
  3. LANSOPRAZOLE [Suspect]
     Indication: HELICOBACTER INFECTION
  4. REBAMIPIDE [Suspect]
     Indication: HELICOBACTER INFECTION

REACTIONS (2)
  - ABDOMINAL PAIN [None]
  - MELAENA [None]
